FAERS Safety Report 6830825-4 (Version None)
Quarter: 2010Q3

REPORT INFORMATION
  Report Type: 
  Country: None (occurrence: None)
  Receive Date: 20100706
  Receipt Date: 20100622
  Transmission Date: 20110219
  Serious: Yes (Death, Hospitalization)
  Sender: FDA-Public Use
  Company Number: A-US2010-36729

PATIENT
  Age: 64 Year
  Sex: Female

DRUGS (3)
  1. TRACLEER [Suspect]
     Indication: PULMONARY ARTERIAL HYPERTENSION
     Dosage: ORAL
     Route: 048
     Dates: start: 20061106, end: 20100524
  2. REVATIO [Concomitant]
  3. REMODULIN [Concomitant]

REACTIONS (3)
  - FLUID RETENTION [None]
  - PULMONARY ARTERIAL HYPERTENSION [None]
  - SCLERODERMA [None]
